FAERS Safety Report 24177251 (Version 1)
Quarter: 2024Q3

REPORT INFORMATION
  Report Type: Spontaneous
  Country: IT (occurrence: IT)
  Receive Date: 20240806
  Receipt Date: 20240806
  Transmission Date: 20241017
  Serious: Yes (Hospitalization)
  Sender: SANDOZ
  Company Number: IT-002147023-NVSC2019IT058338

PATIENT
  Age: 64 Year
  Sex: Female
  Weight: 66 kg

DRUGS (14)
  1. CARBOPLATIN [Suspect]
     Active Substance: CARBOPLATIN
     Indication: Non-small cell lung cancer
     Dosage: 595 MG
     Route: 042
     Dates: start: 20190926
  2. PEMETREXED [Suspect]
     Active Substance: PEMETREXED
     Indication: Non-small cell lung cancer
     Dosage: 830 MG
     Route: 042
     Dates: start: 20190926
  3. PEMBROLIZUMAB [Suspect]
     Active Substance: PEMBROLIZUMAB
     Indication: Non-small cell lung cancer
     Dosage: 200 MG
     Route: 042
     Dates: start: 20190926
  4. ABSTRAL [Concomitant]
     Active Substance: FENTANYL CITRATE
     Indication: Arthralgia
     Dosage: UNK
     Route: 065
  5. DEXAMETHASONE [Concomitant]
     Active Substance: DEXAMETHASONE
     Indication: Asthenia
     Dosage: UNK
     Route: 065
     Dates: start: 20191113, end: 20191115
  6. DEXAMETHASONE [Concomitant]
     Active Substance: DEXAMETHASONE
     Indication: Premedication
     Dosage: UNK
     Route: 065
     Dates: start: 20191103, end: 20191106
  7. DEXAMETHASONE [Concomitant]
     Active Substance: DEXAMETHASONE
     Dosage: UNK
     Route: 065
     Dates: start: 20191114, end: 20191114
  8. FOLIC ACID [Concomitant]
     Active Substance: FOLIC ACID
     Indication: Premedication
     Dosage: UNK
     Route: 065
     Dates: start: 20190905
  9. GRANISETRON [Concomitant]
     Active Substance: GRANISETRON
     Indication: Premedication
     Dosage: UNK
     Route: 065
     Dates: start: 20191114, end: 20191114
  10. LEVOFLOXACIN [Concomitant]
     Active Substance: LEVOFLOXACIN
     Indication: Asthenia
     Dosage: UNK
     Route: 065
     Dates: start: 20191031, end: 20191106
  11. METHYLPREDNISOLONE [Concomitant]
     Active Substance: METHYLPREDNISOLONE
     Indication: Asthenia
     Dosage: UNK
     Route: 065
     Dates: start: 20191102, end: 20191102
  12. ACETAMINOPHEN [Concomitant]
     Active Substance: ACETAMINOPHEN
     Indication: Arthralgia
     Dosage: UNK
     Route: 065
     Dates: start: 20190902
  13. ACETAMINOPHEN [Concomitant]
     Active Substance: ACETAMINOPHEN
     Indication: Asthenia
     Dosage: UNK
     Route: 065
     Dates: start: 20191031, end: 20191102
  14. NALOXONE HYDROCHLORIDE\OXYCODONE HYDROCHLORIDE [Concomitant]
     Active Substance: NALOXONE HYDROCHLORIDE\OXYCODONE HYDROCHLORIDE
     Indication: Arthralgia
     Dosage: UNK
     Route: 065
     Dates: start: 20190926

REACTIONS (4)
  - Syncope [Recovered/Resolved]
  - Anaemia [Recovered/Resolved]
  - Asthenia [Recovered/Resolved]
  - Pyrexia [Recovered/Resolved]

NARRATIVE: CASE EVENT DATE: 20191128
